FAERS Safety Report 6034011-X (Version None)
Quarter: 2009Q1

REPORT INFORMATION
  Report Type: 
  Country: None (occurrence: None)
  Receive Date: 20090109
  Receipt Date: 20090109
  Transmission Date: 20090719
  Serious: Yes (Hospitalization)
  Sender: FDA-Public Use
  Company Number: None

PATIENT
  Age: 78 Year
  Sex: Male

DRUGS (1)
  1. NAPROXEN [Suspect]
     Dosage: 375 MG BID PO
     Route: 048
     Dates: start: 20080902, end: 20090104

REACTIONS (2)
  - ABDOMINAL PAIN [None]
  - GASTRIC HAEMORRHAGE [None]
